FAERS Safety Report 5035331-8 (Version None)
Quarter: 2006Q2

REPORT INFORMATION
  Report Type: 
  Country: None (occurrence: None)
  Receive Date: 20060519
  Receipt Date: 20060328
  Transmission Date: 20061013
  Serious: No
  Sender: FDA-Public Use
  Company Number: TPA2006A00256

PATIENT
  Age: 55 Year
  Sex: Female
  Weight: 68.9467 kg

DRUGS (7)
  1. ROZEREM [Suspect]
     Indication: CHRONIC FATIGUE SYNDROME
     Dosage: 8 MG, HS, PER ORAL
     Route: 048
     Dates: start: 20060202
  2. NEXIUM [Suspect]
     Indication: HIATUS HERNIA
     Dosage: 40 MG, 1 IN 1 D, PER ORAL
     Route: 048
     Dates: start: 20060120
  3. AMBIEN [Suspect]
     Indication: CHRONIC FATIGUE SYNDROME
     Dosage: 6 MG, 1 IN 1 D, PER ORAL
     Route: 048
     Dates: start: 20060201
  4. DIAZEPAM [Suspect]
     Indication: ANXIETY
     Dosage: AS REQUIRED, PER ORAL
     Route: 048
     Dates: start: 20060101
  5. VERAPAMIL [Concomitant]
  6. ZOMIG [Concomitant]
  7. PREMARIN [Concomitant]

REACTIONS (7)
  - DIZZINESS [None]
  - FEELING JITTERY [None]
  - HEADACHE [None]
  - HYPERSOMNIA [None]
  - INITIAL INSOMNIA [None]
  - MIDDLE INSOMNIA [None]
  - SOMNOLENCE [None]
